FAERS Safety Report 8476266-8 (Version None)
Quarter: 2012Q2

REPORT INFORMATION
  Report Type: 
  Country: None (occurrence: None)
  Receive Date: 20120628
  Receipt Date: 20120612
  Transmission Date: 20120825
  Serious: Yes (Other)
  Sender: FDA-Public Use
  Company Number: US-ELI_LILLY_AND_COMPANY-US201203007280

PATIENT
  Age: 70 Year
  Sex: Male

DRUGS (4)
  1. EFFIENT [Suspect]
     Indication: STENT PLACEMENT
     Dosage: UNK
     Dates: start: 20120101
  2. ASPIRIN [Concomitant]
  3. PRAVA [Concomitant]
  4. LIPITOR [Concomitant]

REACTIONS (6)
  - NAUSEA [None]
  - HEPATITIS C [None]
  - LIVER FUNCTION TEST ABNORMAL [None]
  - ABDOMINAL PAIN [None]
  - JAUNDICE [None]
  - MALAISE [None]
